FAERS Safety Report 5308593-7 (Version None)
Quarter: 2007Q2

REPORT INFORMATION
  Report Type: 
  Country: None (occurrence: None)
  Receive Date: 20070426
  Receipt Date: 20070417
  Transmission Date: 20071010
  Serious: Yes (Other)
  Sender: FDA-Public Use
  Company Number: US-AVENTIS-200711397FR

PATIENT
  Age: 11 Year
  Sex: Female

DRUGS (2)
  1. RIFADIN [Suspect]
     Indication: DRUG USE FOR UNKNOWN INDICATION
  2. SYNERCID                           /01462601/ [Suspect]
     Indication: DRUG USE FOR UNKNOWN INDICATION

REACTIONS (1)
  - ANAEMIA [None]
